FAERS Safety Report 7962592-5 (Version None)
Quarter: 2011Q4

REPORT INFORMATION
  Report Type: 
  Country: None (occurrence: None)
  Receive Date: 20111207
  Receipt Date: 20111202
  Transmission Date: 20120403
  Serious: Yes (Other)
  Sender: FDA-Public Use
  Company Number: US-ROXANE LABORATORIES, INC.-2011-RO-01733RO

PATIENT
  Age: 5 Year

DRUGS (1)
  1. MERCAPTOPURINE [Suspect]

REACTIONS (2)
  - PANCYTOPENIA [None]
  - HEPATITIS [None]
